FAERS Safety Report 9752609 (Version 1)
Quarter: 2013Q4

REPORT INFORMATION
  Report Type: Spontaneous
  Country: IT (occurrence: IT)
  Receive Date: 20131213
  Receipt Date: 20131213
  Transmission Date: 20140711
  Serious: Yes (Hospitalization)
  Sender: FDA-Public Use
  Company Number: IT-JNJFOC-20131204888

PATIENT
  Age: 86 Year
  Sex: Female

DRUGS (27)
  1. SERENASE [Suspect]
     Indication: INTENTIONAL OVERDOSE
     Route: 048
     Dates: start: 20130417, end: 20130417
  2. SERENASE [Suspect]
     Indication: INTENTIONAL OVERDOSE
     Dosage: 0.5 UNSPECIFIED UNITS TWICE AN UNSPECIFIED PERIOD
     Route: 048
  3. SERENASE [Suspect]
     Indication: PRODUCT USED FOR UNKNOWN INDICATION
     Route: 048
     Dates: start: 20130417, end: 20130417
  4. SERENASE [Suspect]
     Indication: PRODUCT USED FOR UNKNOWN INDICATION
     Dosage: 0.5 UNSPECIFIED UNITS TWICE AN UNSPECIFIED PERIOD
     Route: 048
  5. CIPRALEX [Suspect]
     Indication: INTENTIONAL OVERDOSE
     Route: 048
     Dates: start: 20130417, end: 20130417
  6. CIPRALEX [Suspect]
     Indication: INTENTIONAL OVERDOSE
     Route: 048
  7. CIPRALEX [Suspect]
     Indication: PRODUCT USED FOR UNKNOWN INDICATION
     Route: 048
  8. CIPRALEX [Suspect]
     Indication: PRODUCT USED FOR UNKNOWN INDICATION
     Route: 048
     Dates: start: 20130417, end: 20130417
  9. METFORMINA [Suspect]
     Indication: INTENTIONAL OVERDOSE
     Dosage: ONCE AN UNSPECIFIED PERIOD
     Route: 048
  10. METFORMINA [Suspect]
     Indication: INTENTIONAL OVERDOSE
     Route: 048
     Dates: start: 20130417, end: 20130417
  11. METFORMINA [Suspect]
     Indication: PRODUCT USED FOR UNKNOWN INDICATION
     Dosage: ONCE AN UNSPECIFIED PERIOD
     Route: 048
  12. METFORMINA [Suspect]
     Indication: PRODUCT USED FOR UNKNOWN INDICATION
     Route: 048
     Dates: start: 20130417, end: 20130417
  13. BISOPROLOL [Suspect]
     Indication: INTENTIONAL OVERDOSE
     Route: 048
     Dates: start: 20130417, end: 20130417
  14. BISOPROLOL [Suspect]
     Indication: INTENTIONAL OVERDOSE
     Dosage: 2.5 UNSPECIFIED UNITS TWICE AN UNSPECIFIED PERIOD
     Route: 048
  15. BISOPROLOL [Suspect]
     Indication: PRODUCT USED FOR UNKNOWN INDICATION
     Route: 048
     Dates: start: 20130417, end: 20130417
  16. BISOPROLOL [Suspect]
     Indication: PRODUCT USED FOR UNKNOWN INDICATION
     Dosage: 2.5 UNSPECIFIED UNITS TWICE AN UNSPECIFIED PERIOD
     Route: 048
  17. TAVOR [Suspect]
     Indication: INTENTIONAL OVERDOSE
     Route: 048
     Dates: start: 20130417, end: 20130417
  18. DIAMICRON [Suspect]
     Indication: INTENTIONAL OVERDOSE
     Dosage: 30 UNSPECIFIED UNITS THRICE AN UNSPECIFIED PERIOD
     Route: 048
  19. DIAMICRON [Suspect]
     Indication: INTENTIONAL OVERDOSE
     Route: 048
     Dates: start: 20130417, end: 20130417
  20. DIAMICRON [Suspect]
     Indication: PRODUCT USED FOR UNKNOWN INDICATION
     Route: 048
     Dates: start: 20130417, end: 20130417
  21. DIAMICRON [Suspect]
     Indication: PRODUCT USED FOR UNKNOWN INDICATION
     Dosage: 30 UNSPECIFIED UNITS THRICE AN UNSPECIFIED PERIOD
     Route: 048
  22. TACHIPIRINA [Suspect]
     Indication: INTENTIONAL OVERDOSE
     Route: 048
     Dates: start: 20130417, end: 20130417
  23. COUMADIN [Concomitant]
     Indication: PRODUCT USED FOR UNKNOWN INDICATION
     Route: 065
  24. DIBASE [Concomitant]
     Indication: PRODUCT USED FOR UNKNOWN INDICATION
     Dosage: 100 UNSPECIFIED UNITS
     Route: 065
  25. NEXIUM [Concomitant]
     Indication: PRODUCT USED FOR UNKNOWN INDICATION
     Route: 065
  26. ISOPTIN [Concomitant]
     Indication: PRODUCT USED FOR UNKNOWN INDICATION
     Route: 065
  27. MACROGOL [Concomitant]
     Indication: PRODUCT USED FOR UNKNOWN INDICATION
     Dosage: 20 UNSPECIFIED UNITS ONCE AN UNSPECIFIED PERIOD
     Route: 065

REACTIONS (4)
  - Bradycardia [Recovered/Resolved]
  - Intentional overdose [Recovered/Resolved]
  - Psychomotor hyperactivity [Recovered/Resolved]
  - Sopor [Recovered/Resolved]
